FAERS Safety Report 20492314 (Version 7)
Quarter: 2024Q1

REPORT INFORMATION
  Report Type: Report from Study
  Country: AT (occurrence: AT)
  Receive Date: 20220218
  Receipt Date: 20240118
  Transmission Date: 20240410
  Serious: Yes (Death, Life-Threatening, Hospitalization)
  Sender: FDA-Public Use
  Company Number: AT-ABBVIE-22K-009-4281353-00

PATIENT
  Sex: Male
  Weight: 85 kg

DRUGS (2)
  1. SKYRIZI [Suspect]
     Active Substance: RISANKIZUMAB-RZAA
     Indication: Psoriasis
     Route: 058
     Dates: start: 20201029, end: 20201126
  2. SKYRIZI [Suspect]
     Active Substance: RISANKIZUMAB-RZAA
     Route: 058
     Dates: start: 20201126

REACTIONS (6)
  - Septic shock [Fatal]
  - General physical health deterioration [Fatal]
  - Pain [Fatal]
  - General physical health deterioration [Fatal]
  - General physical health deterioration [Fatal]
  - Off label use [Unknown]

NARRATIVE: CASE EVENT DATE: 20211202
